FAERS Safety Report 9559354 (Version 1)
Quarter: 2013Q3

REPORT INFORMATION
  Report Type: Spontaneous
  Country: US (occurrence: None)
  Receive Date: 20130906
  Receipt Date: 20130906
  Transmission Date: 20140515
  Serious: Yes (Other)
  Sender: FDA-Public Use
  Company Number: 163-POMAL-13070538

PATIENT
  Age: 69 Year
  Sex: Female

DRUGS (7)
  1. POMALYST (POMALIDOMIDE) (4 MILLIGRAM, CAPSULES) [Suspect]
     Indication: PLASMA CELL MYELOMA
     Dosage: 4 MG, 21 IN 21 D, PO
     Route: 048
     Dates: start: 201303, end: 201306
  2. DEXAMETHASONE (DEXAMETHASONE) (TABLETS) [Concomitant]
  3. DILAUDID (HYDROMORPHONE HYDROCHLORIDE) (TABLETS) [Concomitant]
  4. OXYCONTIN (OXYCODONE HYDROCHLORIDE) (TABLETS) [Concomitant]
  5. CYMBALTA (DULOXEXETINE HYDROCHLORIDE) (CAPSULES) [Concomitant]
  6. COLACE [Concomitant]
  7. VELCADE [Concomitant]

REACTIONS (1)
  - Plasma cell myeloma [None]
